FAERS Safety Report 6122772-0 (Version None)
Quarter: 2009Q1

REPORT INFORMATION
  Report Type: 
  Country: None (occurrence: None)
  Receive Date: 20090318
  Receipt Date: 20090309
  Transmission Date: 20090719
  Serious: Yes (Other)
  Sender: FDA-Public Use
  Company Number: CH-ASTRAZENECA-2009PK00809

PATIENT
  Age: 91 Year
  Sex: Female

DRUGS (3)
  1. ANTRA MUPS 20 MG [Suspect]
     Route: 048
  2. SINTROM [Interacting]
     Indication: TRANSIENT ISCHAEMIC ATTACK
     Route: 048
     Dates: start: 20081205
  3. COZAAR [Interacting]
     Indication: ESSENTIAL HYPERTENSION
     Route: 048

REACTIONS (2)
  - DRUG INTERACTION [None]
  - INTERNATIONAL NORMALISED RATIO INCREASED [None]
